FAERS Safety Report 5436026-9 (Version None)
Quarter: 2007Q3

REPORT INFORMATION
  Report Type: 
  Country: None (occurrence: None)
  Receive Date: 20070831
  Receipt Date: 20070824
  Transmission Date: 20080115
  Serious: Yes (Other)
  Sender: FDA-Public Use
  Company Number: B0482130A

PATIENT
  Age: 58 Year
  Sex: Female
  Weight: 46 kg

DRUGS (5)
  1. SUMATRIPTAN SUCCINATE [Suspect]
     Indication: MIGRAINE
     Dosage: 1MG PER DAY
     Route: 058
     Dates: start: 20070404, end: 20070404
  2. CANDESARTAN CILEXETIL [Concomitant]
     Indication: HYPERTENSION
     Dosage: 8MG PER DAY
     Route: 048
     Dates: start: 20050129
  3. NIVADIL [Concomitant]
     Indication: HYPERTENSION
     Dosage: 2MG PER DAY
     Route: 048
     Dates: start: 20050129
  4. ASPIRIN [Concomitant]
     Indication: HYPERCOAGULATION
     Dosage: 100MG PER DAY
     Route: 048
     Dates: start: 20050129
  5. WARFARIN SODIUM [Concomitant]
     Indication: HYPERCOAGULATION
     Dosage: 1MG PER DAY
     Route: 048
     Dates: start: 20050129

REACTIONS (10)
  - ANGINA PECTORIS [None]
  - CHEST PAIN [None]
  - FEELING ABNORMAL [None]
  - HYPERTENSION [None]
  - HYPERVENTILATION [None]
  - HYPOAESTHESIA [None]
  - MALAISE [None]
  - PULSE PRESSURE DECREASED [None]
  - SWELLING [None]
  - TETANY [None]
